FAERS Safety Report 9459878 (Version 1)
Quarter: 2013Q3

REPORT INFORMATION
  Report Type: Spontaneous
  Country: BR (occurrence: BR)
  Receive Date: 20130815
  Receipt Date: 20130815
  Transmission Date: 20140515
  Serious: Yes (Other)
  Sender: FDA-Public Use
  Company Number: BR-PFIZER INC-2013232461

PATIENT
  Age: 59 Year
  Sex: Female
  Weight: 74 kg

DRUGS (3)
  1. FRONTAL [Suspect]
     Dosage: 0.5 MG, 1X/DAY
     Route: 048
  2. RIVOTRIL [Concomitant]
     Indication: SLEEP DISORDER
     Dosage: 1 TABLET, 1X/DAY AT NIGHT
  3. SELOZOK [Concomitant]
     Indication: CARDIAC DISORDER
     Dosage: UNK

REACTIONS (1)
  - Infarction [Unknown]
